FAERS Safety Report 9821379 (Version 1)
Quarter: 2014Q1

REPORT INFORMATION
  Report Type: Spontaneous
  Country: US (occurrence: None)
  Receive Date: 20140115
  Receipt Date: 20140115
  Transmission Date: 20141002
  Serious: Yes (Other)
  Sender: FDA-Public Use
  Company Number: None

PATIENT
  Age: 11 Year
  Sex: Male
  Weight: 38.56 kg

DRUGS (1)
  1. TAMIFLU [Suspect]
     Indication: INFLUENZA A VIRUS TEST POSITIVE
     Route: 048
     Dates: start: 20140112, end: 20140113

REACTIONS (6)
  - Speech disorder [None]
  - Hallucination [None]
  - Daydreaming [None]
  - Abdominal distension [None]
  - Abdominal pain upper [None]
  - Middle insomnia [None]
